FAERS Safety Report 7266097-9 (Version None)
Quarter: 2011Q1

REPORT INFORMATION
  Report Type: 
  Country: None (occurrence: None)
  Receive Date: 20110131
  Receipt Date: 20110121
  Transmission Date: 20110831
  Serious: Yes (Hospitalization)
  Sender: FDA-Public Use
  Company Number: DE-EISAI INC-E7867-00200-SPO-DE

PATIENT
  Age: 41 Year

DRUGS (1)
  1. GLIADEL [Suspect]
     Indication: ANAPLASTIC ASTROCYTOMA
     Dosage: UNKNOWN
     Route: 018

REACTIONS (6)
  - VOMITING [None]
  - SOMNOLENCE [None]
  - BRAIN HERNIATION [None]
  - NUCHAL RIGIDITY [None]
  - CEREBRAL CYST [None]
  - NAUSEA [None]
